FAERS Safety Report 4912026-X (Version None)
Quarter: 2006Q1

REPORT INFORMATION
  Report Type: 
  Country: None (occurrence: None)
  Receive Date: 20060213
  Receipt Date: 20060202
  Transmission Date: 20060701
  Serious: Yes (Congenital Anomaly)
  Sender: FDA-Public Use
  Company Number: RS005763-GB

PATIENT
  Sex: Male
  Weight: 3.54 kg

DRUGS (1)
  1. RABEPRAZOLE SODIUM [Suspect]
     Indication: DUODENAL ULCER
     Dosage: 20 MG, TRANSPLACENTAL
     Route: 064
     Dates: start: 20050201, end: 20050301

REACTIONS (3)
  - DRUG EXPOSURE DURING PREGNANCY [None]
  - LOWER LIMB DEFORMITY [None]
  - TOE DEFORMITY [None]
